FAERS Safety Report 7753034-3 (Version None)
Quarter: 2011Q3

REPORT INFORMATION
  Report Type: 
  Country: None (occurrence: None)
  Receive Date: 20110915
  Receipt Date: 20110913
  Transmission Date: 20111222
  Serious: Yes (Hospitalization, Other)
  Sender: FDA-Public Use
  Company Number: US-PFIZER INC-2011216569

PATIENT
  Sex: Female
  Weight: 52.154 kg

DRUGS (11)
  1. CYMBALTA [Concomitant]
     Indication: DEPRESSION
     Dosage: 90 MG, DAILY
  2. LORTAB [Concomitant]
     Indication: MUSCULOSKELETAL DISCOMFORT
     Dosage: 7.5/500MG, AS NEEDED
  3. TOVIAZ [Suspect]
     Indication: URINARY INCONTINENCE
     Dosage: 8 MG, DAILY
  4. DURAGESIC-100 [Concomitant]
     Indication: BACK DISORDER
     Dosage: 50 UG, EVERY 48 HOURS
  5. PRAVASTATIN [Concomitant]
     Indication: BLOOD CHOLESTEROL ABNORMAL
     Dosage: UNK, DAILY
  6. ZOLOFT [Suspect]
     Indication: DEPRESSION
     Dosage: 100 MG, 2X/DAY
  7. CYMBALTA [Concomitant]
     Indication: NEURALGIA
  8. PAMELOR [Concomitant]
     Indication: ANXIETY
     Dosage: 1 MG, 2-3X/DAY
  9. FELDENE [Concomitant]
     Indication: BACK DISORDER
     Dosage: 20 MG, AS NEEDED
  10. NEURONTIN [Suspect]
     Indication: MYELITIS TRANSVERSE
     Dosage: 900 MG, 3X/DAY
     Dates: start: 20061101
  11. REQUIP [Concomitant]
     Indication: RESTLESS LEGS SYNDROME
     Dosage: 8 MG, DAILY

REACTIONS (2)
  - SKIN CANCER [None]
  - CEREBROVASCULAR ACCIDENT [None]
